FAERS Safety Report 5787725-0 (Version None)
Quarter: 2008Q2

REPORT INFORMATION
  Report Type: 
  Country: None (occurrence: None)
  Receive Date: 20080624
  Receipt Date: 20080624
  Transmission Date: 20081010
  Serious: Yes (Death)
  Sender: FDA-Public Use
  Company Number: None

PATIENT
  Age: 3 Year
  Sex: Male
  Weight: 14.5151 kg

DRUGS (1)
  1. TUSSIONEX [Suspect]
     Indication: VIRAL UPPER RESPIRATORY TRACT INFECTION
     Dates: start: 20080319

REACTIONS (1)
  - DEATH [None]
